FAERS Safety Report 7602098-6 (Version None)
Quarter: 2011Q3

REPORT INFORMATION
  Report Type: 
  Country: None (occurrence: None)
  Receive Date: 20110711
  Receipt Date: 20110615
  Transmission Date: 20111222
  Serious: Yes (Other)
  Sender: FDA-Public Use
  Company Number: US-BAYER-2011-052686

PATIENT
  Sex: Male
  Weight: 71 kg

DRUGS (20)
  1. MAGNEVIST [Suspect]
     Indication: NUCLEAR MAGNETIC RESONANCE IMAGING ABDOMINAL
     Dosage: UNK
     Dates: start: 20010731, end: 20010731
  2. COUMADIN [Concomitant]
  3. NORVASC [Concomitant]
  4. GADOLINIUM IN UNSPECIFIED DRUG [Suspect]
     Indication: NUCLEAR MAGNETIC RESONANCE IMAGING
     Dosage: UNK
     Dates: start: 19971106, end: 19971106
  5. MINOXIDIL [Concomitant]
  6. PROCARDIA [Concomitant]
  7. VASOTEC [Concomitant]
  8. RENAGEL [Concomitant]
  9. SENSIPAR [Concomitant]
  10. TOPROL-XL [Concomitant]
  11. GADOLINIUM IN UNSPECIFIED DRUG [Suspect]
     Dosage: UNK
     Dates: start: 20000630, end: 20000630
  12. LEXAPRO [Concomitant]
  13. BUSPAR [Concomitant]
  14. LASIX [Concomitant]
  15. LISINOPRIL [Concomitant]
  16. INDERAL [Concomitant]
  17. GADOLINIUM IN UNSPECIFIED DRUG [Suspect]
     Indication: NUCLEAR MAGNETIC RESONANCE IMAGING ABDOMINAL
     Dosage: UNK
     Dates: start: 19991111, end: 19991111
  18. PREDNISONE [Concomitant]
  19. FERROUS SULFATE TAB [Concomitant]
  20. DIGOXIN [Concomitant]

REACTIONS (1)
  - NEPHROGENIC SYSTEMIC FIBROSIS [None]
